FAERS Safety Report 24327989 (Version 1)
Quarter: 2024Q3

REPORT INFORMATION
  Report Type: Report from Study
  Country: KR (occurrence: KR)
  Receive Date: 20240917
  Receipt Date: 20240917
  Transmission Date: 20241016
  Serious: Yes (Hospitalization)
  Sender: JOHNSON AND JOHNSON
  Company Number: KR-JNJFOC-20231279189

PATIENT
  Age: 77 Year
  Sex: Female
  Weight: 43 kg

DRUGS (6)
  1. LAZERTINIB [Suspect]
     Active Substance: LAZERTINIB
     Indication: Non-small cell lung cancer
     Dosage: LAST DOSE PRIOR TO THE EVENT ONSET WAS ON 18-DEC-2023.
     Route: 048
     Dates: start: 20231127
  2. LAZERTINIB [Suspect]
     Active Substance: LAZERTINIB
     Route: 048
     Dates: start: 20231221, end: 20231226
  3. AROTO [Concomitant]
     Indication: Hypertension
     Route: 048
     Dates: start: 20130301
  4. COVASOTAN [Concomitant]
     Indication: Hypertension
     Dosage: 160MG/12.5MG
     Route: 048
     Dates: start: 20130301
  5. AMARYL [Concomitant]
     Active Substance: GLIMEPIRIDE
     Indication: Type 2 diabetes mellitus
     Route: 048
     Dates: start: 20181001
  6. TENLIMAC [Concomitant]
     Indication: Type 2 diabetes mellitus
     Route: 048
     Dates: start: 20181001

REACTIONS (2)
  - Pulmonary embolism [Recovered/Resolved]
  - Deep vein thrombosis [Recovered/Resolved]

NARRATIVE: CASE EVENT DATE: 20231219
